FAERS Safety Report 8824051 (Version 1)
Quarter: 2012Q4

REPORT INFORMATION
  Report Type: 
  Country: US (occurrence: US)
  Receive Date: 20121003
  Receipt Date: 20121003
  Transmission Date: 20130627
  Serious: No
  Sender: FDA-Public Use
  Company Number: US-009507513-1209USA001041

PATIENT
  Sex: Female

DRUGS (1)
  1. INTRONA [Suspect]

REACTIONS (4)
  - Treatment noncompliance [Unknown]
  - Drug label confusion [Unknown]
  - Drug dose omission [Unknown]
  - Drug dispensing error [Unknown]
